FAERS Safety Report 10950191 (Version 3)
Quarter: 2015Q2

REPORT INFORMATION
  Report Type: Spontaneous
  Country: US (occurrence: US)
  Receive Date: 20150324
  Receipt Date: 20150402
  Transmission Date: 20150821
  Serious: No
  Sender: FDA-Public Use
  Company Number: US-ASTRAZENECA-2015SE24419

PATIENT
  Sex: Female

DRUGS (2)
  1. BYDUREON [Suspect]
     Active Substance: EXENATIDE
     Indication: TYPE 2 DIABETES MELLITUS
     Route: 065
     Dates: start: 20150314
  2. BYDUREON [Suspect]
     Active Substance: EXENATIDE
     Indication: TYPE 2 DIABETES MELLITUS
     Dosage: ONCE A WEEK
     Route: 065
     Dates: start: 20150122, end: 20150312

REACTIONS (6)
  - Rash generalised [Not Recovered/Not Resolved]
  - Pruritus generalised [Unknown]
  - Nodule [Not Recovered/Not Resolved]
  - Lip swelling [Unknown]
  - Asthma [Unknown]
  - Generalised erythema [Unknown]

NARRATIVE: CASE EVENT DATE: 20150311
